FAERS Safety Report 20796584 (Version 1)
Quarter: 2022Q2

REPORT INFORMATION
  Report Type: Spontaneous
  Country: US (occurrence: None)
  Receive Date: 20220506
  Receipt Date: 20220506
  Transmission Date: 20220720
  Serious: No
  Sender: FDA-Public Use
  Company Number: None

PATIENT
  Age: 72 Year
  Sex: Female

DRUGS (1)
  1. EVUSHELD [Suspect]
     Active Substance: CILGAVIMAB\TIXAGEVIMAB
     Dates: start: 20220429

REACTIONS (6)
  - Bradycardia [None]
  - Chest discomfort [None]
  - Dizziness [None]
  - Hypertensive urgency [None]
  - Therapy non-responder [None]
  - Brief resolved unexplained event [None]

NARRATIVE: CASE EVENT DATE: 20220429
